FAERS Safety Report 10935497 (Version 1)
Quarter: 2015Q1

REPORT INFORMATION
  Report Type: Spontaneous
  Country: US (occurrence: US)
  Receive Date: 20150320
  Receipt Date: 20150320
  Transmission Date: 20150721
  Serious: No
  Sender: FDA-Public Use
  Company Number: US-GLAXOSMITHKLINE-US2015GSK036848

PATIENT

DRUGS (2)
  1. VERAMYST [Suspect]
     Active Substance: FLUTICASONE FUROATE
     Indication: NASAL OEDEMA
     Dosage: UNK
     Route: 045
  2. FLONASE [Suspect]
     Active Substance: FLUTICASONE PROPIONATE
     Indication: NASAL OEDEMA
     Dosage: UNK
     Route: 045

REACTIONS (1)
  - Drug ineffective [Unknown]
